FAERS Safety Report 11322397 (Version 1)
Quarter: 2015Q3

REPORT INFORMATION
  Report Type: Spontaneous
  Country: US (occurrence: US)
  Receive Date: 20150730
  Receipt Date: 20150730
  Transmission Date: 20151125
  Serious: No
  Sender: FDA-Public Use
  Company Number: US-PFIZER INC-2015241780

PATIENT
  Age: 65 Year
  Sex: Male

DRUGS (1)
  1. EMBEDA [Suspect]
     Active Substance: MORPHINE SULFATE\NALTREXONE HYDROCHLORIDE
     Dosage: 100 MG, 3X/DAY

REACTIONS (3)
  - Product use issue [Unknown]
  - Hyperhidrosis [Unknown]
  - Sinus tachycardia [Unknown]
